FAERS Safety Report 16136491 (Version 1)
Quarter: 2019Q1

REPORT INFORMATION
  Report Type: Report from Study
  Country: BE (occurrence: BE)
  Receive Date: 20190329
  Receipt Date: 20190329
  Transmission Date: 20190418
  Serious: Yes (Hospitalization)
  Sender: FDA-Public Use
  Company Number: BE-SEATTLE GENETICS-2019SGN00895

PATIENT
  Age: 69 Year
  Sex: Male
  Weight: 58 kg

DRUGS (7)
  1. GEMCITABINE [Suspect]
     Active Substance: GEMCITABINE\GEMCITABINE HYDROCHLORIDE
     Indication: LYMPHOMA
     Dosage: UNK
     Route: 065
     Dates: start: 20181213
  2. NEXIUM [Concomitant]
     Active Substance: ESOMEPRAZOLE MAGNESIUM
     Indication: GASTRIC ULCER
     Dosage: UNK
     Route: 065
  3. ACICLOVIR [Concomitant]
     Active Substance: ACYCLOVIR
     Indication: ANTIVIRAL PROPHYLAXIS
     Dosage: UNK
     Route: 065
     Dates: start: 20180308
  4. TRINOMIA                           /06290201/ [Concomitant]
     Active Substance: ASPIRIN\ATORVASTATIN CALCIUM\RAMIPRIL
     Indication: PROPHYLAXIS
     Dosage: UNK
     Route: 065
     Dates: start: 201803
  5. ISOTEN [Concomitant]
     Active Substance: BISOPROLOL FUMARATE
     Indication: CHEMOTHERAPY
     Dosage: UNK
     Route: 065
     Dates: start: 201701
  6. BENERVA [Concomitant]
     Active Substance: THIAMINE HYDROCHLORIDE
     Indication: POLYNEUROPATHY
     Dosage: UNK
     Route: 065
     Dates: start: 20190221
  7. BRENTUXIMAB VEDOTIN [Suspect]
     Active Substance: BRENTUXIMAB VEDOTIN
     Indication: PERIPHERAL T-CELL LYMPHOMA UNSPECIFIED
     Dosage: 1.8 MG/KG, UNK
     Route: 065
     Dates: start: 20181220

REACTIONS (1)
  - Diarrhoea infectious [Not Recovered/Not Resolved]

NARRATIVE: CASE EVENT DATE: 20190321
